FAERS Safety Report 13497278 (Version 1)
Quarter: 2017Q2

REPORT INFORMATION
  Report Type: Report from Study
  Country: IE (occurrence: IE)
  Receive Date: 20170428
  Receipt Date: 20170428
  Transmission Date: 20170830
  Serious: Yes (Other)
  Sender: FDA-Public Use
  Company Number: IE-JNJFOC-20170318739

PATIENT
  Sex: Female

DRUGS (12)
  1. PARACETAMOL [Concomitant]
     Active Substance: ACETAMINOPHEN
     Dosage: PRN (AS REQUIRED)
     Route: 050
  2. STELARA [Suspect]
     Active Substance: USTEKINUMAB
     Indication: PRODUCT USED FOR UNKNOWN INDICATION
     Route: 058
     Dates: start: 20161207
  3. STELARA [Suspect]
     Active Substance: USTEKINUMAB
     Indication: PRODUCT USED FOR UNKNOWN INDICATION
     Route: 058
     Dates: start: 20170424
  4. OMEPRAZOLE. [Concomitant]
     Active Substance: OMEPRAZOLE
     Route: 050
  5. TRAMADOL. [Concomitant]
     Active Substance: TRAMADOL
     Dosage: PRN (AS REQUIRED
     Route: 050
  6. ZOFRAN [Concomitant]
     Active Substance: ONDANSETRON HYDROCHLORIDE
     Route: 050
  7. DELTACORTRIL [Concomitant]
     Active Substance: PREDNISOLONE
     Route: 050
  8. STELARA [Suspect]
     Active Substance: USTEKINUMAB
     Indication: PRODUCT USED FOR UNKNOWN INDICATION
     Route: 058
     Dates: start: 20151209
  9. METHOTREXATE. [Concomitant]
     Active Substance: METHOTREXATE
     Route: 050
  10. CO VATAN [Concomitant]
     Route: 050
  11. TRAMADOL. [Concomitant]
     Active Substance: TRAMADOL
     Route: 050
  12. DESUNIN [Concomitant]
     Active Substance: CHOLECALCIFEROL
     Route: 050

REACTIONS (1)
  - Urinary tract infection [Recovered/Resolved]
